FAERS Safety Report 25474901 (Version 1)
Quarter: 2025Q2

REPORT INFORMATION
  Report Type: Spontaneous
  Country: US (occurrence: US)
  Receive Date: 20250624
  Receipt Date: 20250624
  Transmission Date: 20250717
  Serious: No
  Sender: SANOFI AVENTIS
  Company Number: US-SA-2025SA178008

PATIENT
  Sex: Female

DRUGS (3)
  1. DUPIXENT [Suspect]
     Active Substance: DUPILUMAB
     Indication: Dermatitis atopic
     Route: 058
     Dates: start: 20240626
  2. KYLEENA [Concomitant]
     Active Substance: LEVONORGESTREL
  3. NAPROXEN [Concomitant]
     Active Substance: NAPROXEN

REACTIONS (1)
  - Injection site pain [Unknown]
